FAERS Safety Report 7129629-7 (Version None)
Quarter: 2010Q4

REPORT INFORMATION
  Report Type: 
  Country: None (occurrence: None)
  Receive Date: 20101130
  Receipt Date: 20101124
  Transmission Date: 20110411
  Serious: Yes (Hospitalization, Other)
  Sender: FDA-Public Use
  Company Number: CA-PFIZER INC-2010138626

PATIENT
  Age: 69 Year
  Sex: Female
  Weight: 62.585 kg

DRUGS (1)
  1. CELEBREX [Suspect]
     Indication: BURSITIS
     Dosage: 200 MG, 1X/DAY
     Dates: start: 20101001, end: 20101024

REACTIONS (5)
  - ABDOMINAL PAIN UPPER [None]
  - CARDIAC ENZYMES INCREASED [None]
  - HEADACHE [None]
  - HYPERTENSIVE CRISIS [None]
  - HYPOTHYROIDISM [None]
